FAERS Safety Report 18090441 (Version 4)
Quarter: 2021Q1

REPORT INFORMATION
  Report Type: Spontaneous
  Country: US (occurrence: US)
  Receive Date: 20200730
  Receipt Date: 20210121
  Transmission Date: 20210419
  Serious: Yes (Other)
  Sender: FDA-Public Use
  Company Number: US-009507513-2007USA008941

PATIENT
  Age: 80 Year
  Sex: Female
  Weight: 56.24 kg

DRUGS (21)
  1. AMANTADINE. [Suspect]
     Active Substance: AMANTADINE HYDROCHLORIDE
     Dosage: 137 MILLIGRAM, ORALLY
     Route: 048
  2. PRAMIPEXOLE. [Concomitant]
     Active Substance: PRAMIPEXOLE
     Dosage: UNK
  3. NUPLAZID [Concomitant]
     Active Substance: PIMAVANSERIN TARTRATE
     Indication: HALLUCINATION
     Dosage: UNK
  4. NUPLAZID [Concomitant]
     Active Substance: PIMAVANSERIN TARTRATE
     Indication: PARKINSON^S DISEASE PSYCHOSIS
  5. TEMAZEPAM. [Concomitant]
     Active Substance: TEMAZEPAM
     Dosage: UNK
  6. ESCITALOPRAM [Concomitant]
     Active Substance: ESCITALOPRAM OXALATE
     Dosage: UNK
  7. AMANTADINE. [Suspect]
     Active Substance: AMANTADINE HYDROCHLORIDE
     Indication: PARKINSON^S DISEASE
     Dosage: 274 MILLIGRAM, ORALLY
     Route: 048
     Dates: start: 201905, end: 201905
  8. CLOZAPINE. [Concomitant]
     Active Substance: CLOZAPINE
     Dosage: 6 PILLS
     Dates: start: 2020
  9. AMANTADINE. [Suspect]
     Active Substance: AMANTADINE HYDROCHLORIDE
     Dosage: 137 MILLIGRAM, ORALLY AT BED TIME
     Route: 048
  10. AMANTADINE. [Suspect]
     Active Substance: AMANTADINE HYDROCHLORIDE
     Dosage: 137 MILLIGRAM, ORALLY AT BED TIME
     Route: 048
  11. CLOZAPINE. [Concomitant]
     Active Substance: CLOZAPINE
     Indication: HALLUCINATION
     Dosage: 12.5 MILLIGRAM
     Dates: start: 2020
  12. AMANTADINE. [Suspect]
     Active Substance: AMANTADINE HYDROCHLORIDE
     Dosage: 137 MILLIGRAM, ORALLY
     Route: 048
  13. LINZESS [Concomitant]
     Active Substance: LINACLOTIDE
     Dosage: UNK
  14. VITAMIN D (UNSPECIFIED) [Concomitant]
     Active Substance: VITAMIN D NOS
     Indication: VITAMIN SUPPLEMENTATION
     Dosage: UNK
  15. SINEMET [Suspect]
     Active Substance: CARBIDOPA\LEVODOPA
     Indication: PARKINSON^S DISEASE
     Dosage: UNK
     Route: 048
  16. PROGESTERONE. [Concomitant]
     Active Substance: PROGESTERONE
     Dosage: UNK
  17. RIVASTIGMINE. [Concomitant]
     Active Substance: RIVASTIGMINE
     Dosage: UNK
  18. ATROPINE. [Concomitant]
     Active Substance: ATROPINE
     Dosage: UNK
  19. AMANTADINE. [Suspect]
     Active Substance: AMANTADINE HYDROCHLORIDE
     Indication: DYSKINESIA
     Dosage: 137 MG, REPORTED AS GOCOVRI
     Route: 048
     Dates: start: 20190501, end: 201905
  20. AMANTADINE. [Suspect]
     Active Substance: AMANTADINE HYDROCHLORIDE
     Dosage: 137 MILLIGRAM, ORALLY
     Route: 048
     Dates: start: 201905, end: 2019
  21. ESTRADIOL. [Concomitant]
     Active Substance: ESTRADIOL
     Dosage: UNK

REACTIONS (14)
  - Fungal infection [Not Recovered/Not Resolved]
  - Somnolence [Not Recovered/Not Resolved]
  - Peripheral swelling [Recovered/Resolved]
  - Wrist surgery [Recovered/Resolved]
  - Wrist fracture [Recovered/Resolved]
  - Abdominal distension [Recovering/Resolving]
  - Swelling face [Not Recovered/Not Resolved]
  - Obsessive-compulsive disorder [Unknown]
  - Peripheral swelling [Not Recovered/Not Resolved]
  - Fall [Recovered/Resolved]
  - Parkinson^s disease psychosis [Unknown]
  - Weight increased [Recovering/Resolving]
  - Cognitive disorder [Not Recovered/Not Resolved]
  - Fluid retention [Unknown]

NARRATIVE: CASE EVENT DATE: 2019
